FAERS Safety Report 25140962 (Version 1)
Quarter: 2025Q1

REPORT INFORMATION
  Report Type: Spontaneous
  Country: CZ (occurrence: CZ)
  Receive Date: 20250331
  Receipt Date: 20250331
  Transmission Date: 20250408
  Serious: Yes (Hospitalization, Disabling, Other)
  Sender: NOVARTIS
  Company Number: None

PATIENT
  Age: 61 Year
  Sex: Female
  Weight: 60 kg

DRUGS (4)
  1. MEKINIST [Suspect]
     Active Substance: TRAMETINIB DIMETHYL SULFOXIDE
     Indication: Malignant melanoma
     Dosage: 2 MG, QD (0-0-1NOW AFTER THE ADVERSE REACTIONS HAVE DISAPPEARED, SHE STARTED TO TAKE THIS MEDICINE A
     Route: 048
     Dates: start: 20181001
  2. TAFINLAR [Suspect]
     Active Substance: DABRAFENIB MESYLATE
     Indication: Malignant melanoma
     Dosage: 75 MG, Q12H (1-0-1)
     Route: 048
     Dates: start: 20181001
  3. EUTHYROX [Concomitant]
     Active Substance: LEVOTHYROXINE SODIUM
     Indication: Product used for unknown indication
     Dosage: 125 UG, QD (1-0-0)
     Route: 048
  4. DIOSMIN\HESPERIDIN [Concomitant]
     Active Substance: DIOSMIN\HESPERIDIN
     Indication: Product used for unknown indication
     Dosage: 1000 MG, QD (2-0-0)
     Route: 048

REACTIONS (6)
  - Colitis ulcerative [Unknown]
  - Diarrhoea [Recovering/Resolving]
  - Pyrexia [Recovering/Resolving]
  - Hypotension [Recovering/Resolving]
  - Weight decreased [Recovering/Resolving]
  - Appetite disorder [Recovering/Resolving]

NARRATIVE: CASE EVENT DATE: 20250120
